FAERS Safety Report 7150439-9 (Version None)
Quarter: 2010Q4

REPORT INFORMATION
  Report Type: 
  Country: None (occurrence: None)
  Receive Date: 20101210
  Receipt Date: 20101129
  Transmission Date: 20110411
  Serious: No
  Sender: FDA-Public Use
  Company Number: PHHY2010AU01349

PATIENT
  Sex: Female

DRUGS (9)
  1. TASIGNA [Suspect]
     Indication: CHRONIC MYELOID LEUKAEMIA
     Dosage: 800 MG DAILY
     Route: 048
     Dates: start: 20080301
  2. TASIGNA [Suspect]
     Dosage: 800 MG DAILY
     Route: 048
     Dates: start: 20090801
  3. TASIGNA [Suspect]
     Dosage: 400 MG
     Route: 048
     Dates: start: 20100601, end: 20100801
  4. TASIGNA [Suspect]
     Dosage: 800 MG DAILY
     Dates: end: 20100901
  5. WARFARIN SODIUM [Concomitant]
     Indication: DEEP VEIN THROMBOSIS
     Dosage: UNK
     Dates: start: 20070801
  6. MOVICOL [Concomitant]
     Indication: CONSTIPATION
     Dosage: UNK
     Dates: start: 20090701
  7. COLOXYL [Concomitant]
     Indication: CONSTIPATION
     Dosage: UNK
     Dates: start: 20090701
  8. NEXIUM [Concomitant]
     Indication: DYSPEPSIA
     Dosage: 20 MG
     Dates: start: 20090801
  9. LACTULOSE [Concomitant]
     Indication: CONSTIPATION
     Dosage: 10 ML 2 TO 4 TIMES DAILY
     Dates: start: 20100601

REACTIONS (12)
  - BREAST ENLARGEMENT [None]
  - CONSTIPATION [None]
  - DEPRESSION [None]
  - FATIGUE [None]
  - FLATULENCE [None]
  - GASTROOESOPHAGEAL REFLUX DISEASE [None]
  - HYPERHIDROSIS [None]
  - IRRITABLE BOWEL SYNDROME [None]
  - NAUSEA [None]
  - OESOPHAGEAL IRRITATION [None]
  - URTICARIA [None]
  - WEIGHT INCREASED [None]
